FAERS Safety Report 7959248-1 (Version None)
Quarter: 2011Q4

REPORT INFORMATION
  Report Type: 
  Country: None (occurrence: None)
  Receive Date: 20111206
  Receipt Date: 20111130
  Transmission Date: 20120403
  Serious: Yes (Other)
  Sender: FDA-Public Use
  Company Number: US-PFIZER INC-2011292549

PATIENT
  Sex: Female
  Weight: 72.6 kg

DRUGS (3)
  1. SYNTHROID [Concomitant]
     Indication: HYPOTHYROIDISM
     Dosage: UNK
     Dates: start: 19980101
  2. PRISTIQ [Suspect]
     Indication: DEPRESSION
     Dosage: 100 MG, DAILY
     Dates: start: 20090901
  3. PRISTIQ [Suspect]
     Indication: MENOPAUSAL SYMPTOMS
     Dosage: 300 MG, DAILY
     Dates: end: 20100906

REACTIONS (3)
  - MIGRAINE [None]
  - WITHDRAWAL SYNDROME [None]
  - LOSS OF CONSCIOUSNESS [None]
